FAERS Safety Report 9374037 (Version 2)
Quarter: 2013Q4

REPORT INFORMATION
  Report Type: Spontaneous
  Country: FR (occurrence: FR)
  Receive Date: 20130628
  Receipt Date: 20131118
  Transmission Date: 20140711
  Serious: Yes (Hospitalization)
  Sender: FDA-Public Use
  Company Number: FR-009507513-1306FRA009706

PATIENT
  Age: 64 Year
  Sex: Female

DRUGS (4)
  1. SINEMET L.P. [Suspect]
     Indication: PARKINSON^S DISEASE
     Dosage: UNK
     Route: 048
     Dates: start: 201101
  2. REQUIP [Suspect]
     Indication: PARKINSON^S DISEASE
     Dosage: 8 MG, UNK
     Route: 048
     Dates: start: 200810, end: 201305
  3. MANTADIX [Suspect]
     Indication: PARKINSON^S DISEASE
     Dosage: 3 DF, QD
     Route: 048
     Dates: start: 2009
  4. AZILECT [Suspect]
     Indication: PARKINSON^S DISEASE
     Dosage: 1 DF, QD
     Route: 048
     Dates: start: 2009

REACTIONS (1)
  - Pathological gambling [Recovered/Resolved]
